FAERS Safety Report 6067410-0 (Version None)
Quarter: 2009Q1

REPORT INFORMATION
  Report Type: 
  Country: None (occurrence: None)
  Receive Date: 20090205
  Receipt Date: 20090126
  Transmission Date: 20090719
  Serious: Yes (Death)
  Sender: FDA-Public Use
  Company Number: JP-PFIZER INC-2009163349

PATIENT

DRUGS (1)
  1. CELECOX [Suspect]
     Dosage: UNK
     Route: 048
     Dates: start: 20080701

REACTIONS (1)
  - DEATH [None]
